FAERS Safety Report 15505809 (Version 1)
Quarter: 2018Q4

REPORT INFORMATION
  Report Type: Spontaneous
  Country: US (occurrence: US)
  Receive Date: 20181016
  Receipt Date: 20181016
  Transmission Date: 20190205
  Serious: No
  Sender: FDA-Public Use
  Company Number: US-BAYER-2018-192309

PATIENT
  Sex: Female

DRUGS (1)
  1. GADAVIST [Suspect]
     Active Substance: GADOBUTROL
     Indication: BREAST SCAN
     Dosage: UNK UNK, ONCE
     Dates: start: 20180827, end: 20180827

REACTIONS (1)
  - Pruritus [None]

NARRATIVE: CASE EVENT DATE: 201810
